FAERS Safety Report 10329608 (Version 3)
Quarter: 2014Q3

REPORT INFORMATION
  Report Type: Spontaneous
  Country: IT (occurrence: IT)
  Receive Date: 20140721
  Receipt Date: 20140730
  Transmission Date: 20150326
  Serious: Yes (Hospitalization)
  Sender: FDA-Public Use
  Company Number: IT-TEVA-494417ISR

PATIENT
  Age: 78 Year
  Sex: Female

DRUGS (3)
  1. SOLDESAM - MG/ML SOLUZIONE INIETTABILE [Concomitant]
     Indication: PREMEDICATION
     Route: 042
  2. ZOFRAN - 8 MG/4 ML SOLUZIONE INIETTABILE [Concomitant]
     Indication: PREMEDICATION
     Route: 042
  3. CARBOPLATINO TEVA [Suspect]
     Active Substance: CARBOPLATIN
     Indication: OVARIAN CANCER
     Route: 042
     Dates: start: 20140529, end: 20140625

REACTIONS (2)
  - Back pain [Recovered/Resolved]
  - Hyperhidrosis [Recovered/Resolved]

NARRATIVE: CASE EVENT DATE: 20140625
